FAERS Safety Report 5595583-2 (Version None)
Quarter: 2008Q1

REPORT INFORMATION
  Report Type: 
  Country: None (occurrence: None)
  Receive Date: 20080118
  Receipt Date: 20080111
  Transmission Date: 20080703
  Serious: Yes (Other)
  Sender: FDA-Public Use
  Company Number: PHRM2008FR00622

PATIENT
  Age: 77 Year
  Sex: Male

DRUGS (5)
  1. STALEVO 100 [Suspect]
     Dosage: 200/150/37.5 MG, TID
     Route: 048
     Dates: start: 20060101
  2. KARDEGIC [Suspect]
     Route: 048
  3. FOSAMAX [Concomitant]
     Route: 048
  4. DOLIPRANE [Concomitant]
     Route: 048
  5. DAFLON 500 [Concomitant]
     Route: 048

REACTIONS (1)
  - RECTAL HAEMORRHAGE [None]
